FAERS Safety Report 9890328 (Version 2)
Quarter: 2014Q1

REPORT INFORMATION
  Report Type: Spontaneous
  Country: US (occurrence: US)
  Receive Date: 20140212
  Receipt Date: 20140212
  Transmission Date: 20141002
  Serious: Yes (Other)
  Sender: FDA-Public Use
  Company Number: US-BEH-2013036607

PATIENT
  Age: 53 Year
  Sex: Female

DRUGS (1)
  1. IVIG [Suspect]
     Indication: AUTOIMMUNE HAEMOLYTIC ANAEMIA

REACTIONS (1)
  - Drug ineffective [Unknown]
